FAERS Safety Report 20423039 (Version 2)
Quarter: 2022Q1

REPORT INFORMATION
  Report Type: Spontaneous
  Country: ES (occurrence: DE)
  Receive Date: 20220203
  Receipt Date: 20220207
  Transmission Date: 20220423
  Serious: Yes (Death, Hospitalization, Other)
  Sender: FDA-Public Use
  Company Number: None

PATIENT
  Age: 65 Year
  Sex: Female
  Weight: 120 kg

DRUGS (2)
  1. ELIQUIS [Suspect]
     Active Substance: APIXABAN
     Indication: Cerebrovascular accident prophylaxis
     Dosage: 5 MILLIGRAM, BID
     Route: 048
     Dates: start: 20210321, end: 20220112
  2. METHOTREXATE SODIUM [Suspect]
     Active Substance: METHOTREXATE SODIUM
     Indication: Rheumatic disorder
     Dosage: 10 MILLIGRAM, QWK
     Route: 048
     Dates: start: 20210901, end: 20220107

REACTIONS (12)
  - Anaemia [Fatal]
  - Asthenia [Unknown]
  - Dyspnoea [Unknown]
  - Vaginal haemorrhage [Unknown]
  - Diarrhoea [Unknown]
  - Cardiac failure [Unknown]
  - Sepsis [Unknown]
  - Pulmonary oedema [Unknown]
  - Hypoxia [Unknown]
  - Toxicity to various agents [Unknown]
  - Condition aggravated [Unknown]
  - Medical induction of coma [Unknown]

NARRATIVE: CASE EVENT DATE: 20220112
